FAERS Safety Report 10760089 (Version 2)
Quarter: 2015Q4

REPORT INFORMATION
  Report Type: Report from Study
  Country: BR (occurrence: BR)
  Receive Date: 20150204
  Receipt Date: 20151003
  Transmission Date: 20160304
  Serious: Yes (Other)
  Sender: FDA-Public Use
  Company Number: BR-ABBVIE-15K-020-1340671-00

PATIENT
  Sex: Female
  Weight: 66 kg

DRUGS (8)
  1. RIVOTRIL [Concomitant]
     Active Substance: CLONAZEPAM
     Indication: SLEEP DISORDER THERAPY
     Route: 048
  2. GLUCOSAMINE [Concomitant]
     Active Substance: GLUCOSAMINE
     Indication: DIABETES MELLITUS INADEQUATE CONTROL
     Route: 048
  3. OSTEOFIX [Concomitant]
     Indication: BONE DISORDER
     Route: 048
  4. CARBOLITIUM [Concomitant]
     Active Substance: LITHIUM CARBONATE
     Indication: DEPRESSION
     Route: 048
  5. METFORMIN [Concomitant]
     Active Substance: METFORMIN HYDROCHLORIDE
     Indication: BLOOD GLUCOSE
     Route: 048
  6. HUMIRA [Suspect]
     Active Substance: ADALIMUMAB
     Indication: RHEUMATOID ARTHRITIS
     Route: 058
     Dates: end: 201411
  7. HUMIRA [Suspect]
     Active Substance: ADALIMUMAB
     Route: 058
  8. ENALAPRIL [Concomitant]
     Active Substance: ENALAPRIL
     Indication: BLOOD PRESSURE ABNORMAL
     Route: 048

REACTIONS (3)
  - Knee deformity [Recovering/Resolving]
  - Limb deformity [Recovering/Resolving]
  - Cartilage injury [Recovering/Resolving]
